FAERS Safety Report 14475123 (Version 1)
Quarter: 2018Q1

REPORT INFORMATION
  Report Type: Spontaneous
  Country: US (occurrence: US)
  Receive Date: 20180131
  Receipt Date: 20180131
  Transmission Date: 20180509
  Serious: Yes (Disabling)
  Sender: FDA-Public Use
  Company Number: None

PATIENT
  Age: 77 Year
  Sex: Male
  Weight: 68.85 kg

DRUGS (12)
  1. B6 [Concomitant]
     Active Substance: PYRIDOXINE HYDROCHLORIDE
  2. BORON [Concomitant]
     Active Substance: BORON
  3. RECLAST [Suspect]
     Active Substance: ZOLEDRONIC ACID
     Indication: OSTEOPOROSIS
     Dosage: ?          OTHER ROUTE:INFUSION?
     Dates: start: 20180105
  4. MULTI VITAMINS [Concomitant]
     Active Substance: VITAMINS
  5. TAMSULOSIN [Concomitant]
     Active Substance: TAMSULOSIN
  6. RANITIDINE. [Concomitant]
     Active Substance: RANITIDINE
  7. LORATIDINE [Concomitant]
     Active Substance: LORATADINE
  8. CALCIUM SUPPLEMENT [Concomitant]
     Active Substance: CALCIUM
  9. VITAMIN B12 [Concomitant]
     Active Substance: CYANOCOBALAMIN
  10. FINASTERID [Concomitant]
     Active Substance: FINASTERIDE
  11. VITAMIN D3 [Concomitant]
     Active Substance: CHOLECALCIFEROL
  12. MAGNESIUM [Concomitant]
     Active Substance: MAGNESIUM

REACTIONS (4)
  - Pain [None]
  - Mastocytosis [None]
  - Arthralgia [None]
  - Gait disturbance [None]

NARRATIVE: CASE EVENT DATE: 20180105
